FAERS Safety Report 8935705 (Version 1)
Quarter: 2012Q4

REPORT INFORMATION
  Report Type: 
  Country: DE (occurrence: DE)
  Receive Date: 20121130
  Receipt Date: 20121130
  Transmission Date: 20130627
  Serious: Yes (Hospitalization, Other)
  Sender: FDA-Public Use
  Company Number: DE-ELI_LILLY_AND_COMPANY-DE201211006126

PATIENT
  Age: 92 Year
  Sex: Male

DRUGS (2)
  1. FORSTEO [Suspect]
     Indication: OSTEOPOROSIS
     Dosage: UNK, qd
     Route: 058
     Dates: start: 20120517
  2. MARCUMAR [Concomitant]
     Dosage: UNK, unknown
     Route: 065

REACTIONS (4)
  - Dementia [Unknown]
  - Dehydration [Unknown]
  - Syncope [Unknown]
  - Renal disorder [Unknown]
